FAERS Safety Report 13496095 (Version 2)
Quarter: 2017Q3

REPORT INFORMATION
  Report Type: Spontaneous
  Country: US (occurrence: US)
  Receive Date: 20170428
  Receipt Date: 20170928
  Transmission Date: 20171127
  Serious: Yes (Death, Other)
  Sender: FDA-Public Use
  Company Number: US-PFIZER INC-2017183947

PATIENT
  Age: 47 Year
  Sex: Female

DRUGS (2)
  1. SUTENT [Suspect]
     Active Substance: SUNITINIB MALATE
     Indication: RENAL CANCER
     Dosage: 37.5 MG, CYCLIC (1 CAPSULE EVERY DAY FOR 4 WEEKS AND 1 WEEK OFF)
     Route: 048
     Dates: start: 201703
  2. SUTENT [Suspect]
     Active Substance: SUNITINIB MALATE
     Dosage: 35 MG
     Dates: start: 20170320, end: 20170420

REACTIONS (1)
  - Death [Fatal]

NARRATIVE: CASE EVENT DATE: 20170424
